FAERS Safety Report 6601930-2 (Version None)
Quarter: 2010Q1

REPORT INFORMATION
  Report Type: 
  Country: None (occurrence: None)
  Receive Date: 20100218
  Receipt Date: 20100209
  Transmission Date: 20100710
  Serious: Yes (Hospitalization)
  Sender: FDA-Public Use
  Company Number: 006643

PATIENT
  Age: 12 Year
  Sex: Male

DRUGS (2)
  1. METADATE CD [Suspect]
  2. ADDERALL 30 [Suspect]

REACTIONS (2)
  - AKATHISIA [None]
  - MUSCLE RIGIDITY [None]
